FAERS Safety Report 6902260-1 (Version None)
Quarter: 2010Q3

REPORT INFORMATION
  Report Type: 
  Country: None (occurrence: None)
  Receive Date: 20100803
  Receipt Date: 20080509
  Transmission Date: 20110219
  Serious: No
  Sender: FDA-Public Use
  Company Number: US-PFIZER INC-2008041199

PATIENT
  Sex: Male
  Weight: 95 kg

DRUGS (9)
  1. LYRICA [Suspect]
     Indication: NERVE INJURY
     Route: 048
  2. LEXAPRO [Concomitant]
  3. CARDIZEM [Concomitant]
  4. WARFARIN SODIUM [Concomitant]
  5. NEXIUM [Concomitant]
  6. ALL OTHER THERAPEUTIC PRODUCTS [Concomitant]
  7. CENTRUM SILVER [Concomitant]
  8. LAXATIVES [Concomitant]
  9. MORPHINE [Concomitant]

REACTIONS (3)
  - DRUG DOSE OMISSION [None]
  - INSOMNIA [None]
  - MUSCULOSKELETAL STIFFNESS [None]
